FAERS Safety Report 8313988-3 (Version None)
Quarter: 2012Q2

REPORT INFORMATION
  Report Type: 
  Country: None (occurrence: None)
  Receive Date: 20120426
  Receipt Date: 20110808
  Transmission Date: 20120825
  Serious: Yes (Other)
  Sender: FDA-Public Use
  Company Number: US-TEVA-US022241

PATIENT
  Sex: Female
  Weight: 66 kg

DRUGS (2)
  1. PROVIGIL [Suspect]
     Indication: FATIGUE
     Dosage: 200MG TO 400MG PRN
     Route: 048
     Dates: end: 20080101
  2. UNSPECIFIED BIRTH CONTROL PILL [Suspect]
     Indication: ORAL CONTRACEPTION
     Route: 065

REACTIONS (2)
  - METRORRHAGIA [None]
  - DRUG INTERACTION [None]
